FAERS Safety Report 9034882 (Version 2)
Quarter: 2013Q2

REPORT INFORMATION
  Report Type: Spontaneous
  Country: IN (occurrence: IN)
  Receive Date: 20130128
  Receipt Date: 20130401
  Transmission Date: 20140414
  Serious: Yes (Hospitalization)
  Sender: FDA-Public Use
  Company Number: IN-ASTRAZENECA-2013SE04564

PATIENT
  Age: 2462 Week
  Sex: Male
  Weight: 69 kg

DRUGS (3)
  1. MERONEM [Suspect]
     Indication: URINARY TRACT INFECTION
     Dosage: 1 G EVERY EIGHT HOURS, COUNTERFEIT PRODUCT
     Route: 042
     Dates: start: 20130116
  2. MERONEM [Suspect]
     Indication: URINARY TRACT INFECTION
     Dosage: 1 G EVERY EIGHT HOURS, COUNTERFEIT PRODUCT
     Route: 042
     Dates: start: 20130118
  3. MERONEM [Suspect]
     Indication: URINARY TRACT INFECTION
     Dosage: 1 G EVERY EIGHT HOURS, AUTHENTIC PRODUCT
     Route: 042

REACTIONS (3)
  - Choking sensation [Recovered/Resolved]
  - Paraesthesia [Recovered/Resolved]
  - Counterfeit drug administered [Unknown]
